FAERS Safety Report 20798557 (Version 1)
Quarter: 2022Q2

REPORT INFORMATION
  Report Type: Spontaneous
  Country: US (occurrence: US)
  Receive Date: 20220507
  Receipt Date: 20220507
  Transmission Date: 20220721
  Serious: No
  Sender: FDA-Public Use
  Company Number: US-GLAXOSMITHKLINE-US2022AMR074261

PATIENT
  Age: 48 Year
  Sex: Female

DRUGS (2)
  1. FLONASE [Suspect]
     Active Substance: FLUTICASONE PROPIONATE
     Indication: Chronic sinusitis
     Dosage: UNK
     Route: 055
     Dates: start: 202109
  2. BUDESONIDE [Concomitant]
     Active Substance: BUDESONIDE
     Indication: Chronic sinusitis
     Dosage: UNK
     Route: 055
     Dates: start: 202111

REACTIONS (1)
  - Product use in unapproved indication [Unknown]

NARRATIVE: CASE EVENT DATE: 20210901
